FAERS Safety Report 25738357 (Version 4)
Quarter: 2025Q3

REPORT INFORMATION
  Report Type: Spontaneous
  Country: US (occurrence: US)
  Receive Date: 20250829
  Receipt Date: 20250919
  Transmission Date: 20251021
  Serious: Yes (Life-Threatening, Hospitalization, Other)
  Sender: AMGEN
  Company Number: US-AMGEN-USASP2025164124

PATIENT
  Age: 73 Year
  Sex: Female

DRUGS (11)
  1. REPATHA [Suspect]
     Active Substance: EVOLOCUMAB
     Indication: Product used for unknown indication
     Dosage: 140 MILLIGRAM PER MILLILITRE, Q2WK
     Route: 058
     Dates: start: 2025
  2. OMNICEF [Concomitant]
     Active Substance: CEFDINIR
     Dosage: 300 MILLIGRAM, BID
     Route: 048
     Dates: start: 20250826, end: 20250830
  3. VITAMIN D3 [Concomitant]
     Active Substance: CHOLECALCIFEROL
  4. SYNTHROID [Concomitant]
     Active Substance: LEVOTHYROXINE SODIUM
     Dosage: 88 MICROGRAM, QD
     Route: 048
  5. FORTEO [Concomitant]
     Active Substance: TERIPARATIDE
     Route: 058
  6. DEXTROSTAT [Concomitant]
     Active Substance: DEXTROAMPHETAMINE SULFATE
     Dosage: 10 MILLIGRAM, BID
     Route: 048
     Dates: start: 20250123
  7. ANTIVERT [Concomitant]
     Active Substance: MECLIZINE HYDROCHLORIDE
     Indication: Dizziness
     Dosage: 25 MILLIGRAM, TID
     Route: 048
     Dates: start: 20250116
  8. ALDACTONE [Concomitant]
     Active Substance: SPIRONOLACTONE
     Dosage: 25 MILLIGRAM, QD
     Route: 048
     Dates: start: 20250402
  9. COZAAR [Concomitant]
     Active Substance: LOSARTAN POTASSIUM
     Dosage: 50 MILLIGRAM, QD
     Route: 048
     Dates: start: 20250402
  10. JARDIANCE [Concomitant]
     Active Substance: EMPAGLIFLOZIN
     Dosage: 10 MILLIGRAM, QD
     Route: 048
     Dates: start: 20250630
  11. COREG [Concomitant]
     Active Substance: CARVEDILOL

REACTIONS (21)
  - Heart rate decreased [Recovered/Resolved]
  - Syncope [Unknown]
  - Cervical spinal stenosis [Unknown]
  - Atrioventricular block complete [Unknown]
  - Thoracic spinal stenosis [Unknown]
  - Cardiomyopathy [Unknown]
  - Hypothyroidism [Unknown]
  - Cerebrovascular accident [Unknown]
  - Gait disturbance [Unknown]
  - Lumbar spinal stenosis [Unknown]
  - Vertebral foraminal stenosis [Unknown]
  - Coronary artery disease [Unknown]
  - Obesity [Unknown]
  - Gout [Unknown]
  - Dyslipidaemia [Unknown]
  - Device difficult to use [Unknown]
  - Fall [Unknown]
  - Osteoarthritis [Unknown]
  - Glucose tolerance impaired [Unknown]
  - Hypertension [Unknown]
  - Urinary tract infection [Unknown]

NARRATIVE: CASE EVENT DATE: 20250801
